FAERS Safety Report 5582208-5 (Version None)
Quarter: 2007Q4

REPORT INFORMATION
  Report Type: 
  Country: None (occurrence: None)
  Receive Date: 20071130
  Receipt Date: 20070706
  Transmission Date: 20080405
  Serious: No
  Sender: FDA-Public Use
  Company Number: US200705006315

PATIENT
  Age: 64 Year
  Sex: Female
  Weight: 108.8 kg

DRUGS (5)
  1. BYETTA [Suspect]
     Indication: TYPE 2 DIABETES MELLITUS
     Dosage: 5 UG, 2/D, SUBCUTANEOUS
     Route: 058
     Dates: start: 20070501
  2. ACTOS (PIOGLITAZONE UNKNOWN MANUFACTURER) [Concomitant]
  3. METFORMIN HCL [Concomitant]
  4. METHOTREXATE [Concomitant]
  5. BIOTENE (GLUCOSE OXIDASE) [Concomitant]

REACTIONS (6)
  - ABDOMINAL DISTENSION [None]
  - CONSTIPATION [None]
  - DECREASED APPETITE [None]
  - NAUSEA [None]
  - STOMATITIS [None]
  - WEIGHT DECREASED [None]
